FAERS Safety Report 5476844-4 (Version None)
Quarter: 2007Q4

REPORT INFORMATION
  Report Type: 
  Country: None (occurrence: None)
  Receive Date: 20071004
  Receipt Date: 20070924
  Transmission Date: 20080405
  Serious: Yes (Other)
  Sender: FDA-Public Use
  Company Number: US-ROCHE-521497

PATIENT
  Age: 76 Year
  Sex: Male
  Weight: 113.4 kg

DRUGS (1)
  1. XELODA [Suspect]
     Indication: COLON CANCER
     Dosage: PATIENT TOOK 1300 MG (TWO 500 MG TABLETS AND TWO 150 MG TABLETS) TWICE PER DAY (MORNING AND EVENING+
     Route: 048
     Dates: start: 20060530, end: 20060711

REACTIONS (2)
  - BREAST TENDERNESS [None]
  - CARCINOEMBRYONIC ANTIGEN INCREASED [None]
